FAERS Safety Report 5531070-5 (Version None)
Quarter: 2007Q4

REPORT INFORMATION
  Report Type: 
  Country: None (occurrence: None)
  Receive Date: 20071130
  Receipt Date: 20071106
  Transmission Date: 20080405
  Serious: No
  Sender: FDA-Public Use
  Company Number: US-BOEHRINGER INGELHEIM PHARMACEUTICALS, INC.-2007-BP-23972BP

PATIENT
  Age: 78 Year
  Sex: Female

DRUGS (7)
  1. AGGRENOX [Suspect]
     Indication: TRANSIENT ISCHAEMIC ATTACK
     Route: 048
     Dates: start: 20020101, end: 20040101
  2. AGGRENOX [Suspect]
  3. ZOCOR [Suspect]
  4. CARDIZEM [Suspect]
  5. SINEMET [Suspect]
  6. ASPIRIN [Concomitant]
     Indication: TRANSIENT ISCHAEMIC ATTACK
  7. PLAVIX [Concomitant]
     Indication: TRANSIENT ISCHAEMIC ATTACK

REACTIONS (1)
  - DYSPEPSIA [None]
